FAERS Safety Report 23088353 (Version 1)
Quarter: 2023Q4

REPORT INFORMATION
  Report Type: Spontaneous
  Country: US (occurrence: US)
  Receive Date: 20231020
  Receipt Date: 20231020
  Transmission Date: 20240110
  Serious: No
  Sender: FDA-Public Use
  Company Number: US-GSKCCFUS-Case-01829513_AE-102274

PATIENT
  Sex: Female

DRUGS (3)
  1. TRELEGY ELLIPTA [Suspect]
     Active Substance: FLUTICASONE FUROATE\UMECLIDINIUM BROMIDE\VILANTEROL TRIFENATATE
     Indication: Chronic obstructive pulmonary disease
     Dosage: UNK,100/62.5/25MCG
     Route: 055
     Dates: start: 20230103
  2. RECLAST [Concomitant]
     Active Substance: ZOLEDRONIC ACID
     Indication: Product used for unknown indication
     Dosage: UNK
     Dates: start: 2021
  3. TROSPIUM [Concomitant]
     Active Substance: TROSPIUM
     Indication: Urinary incontinence
     Dosage: 1 DF, QD, CAPSULE
     Dates: start: 2023

REACTIONS (3)
  - Dyspnoea [Unknown]
  - Underdose [Unknown]
  - Labelled drug-drug interaction issue [Unknown]
